FAERS Safety Report 20466642 (Version 1)
Quarter: 2022Q1

REPORT INFORMATION
  Report Type: Report from Study
  Country: DE (occurrence: DE)
  Receive Date: 20220213
  Receipt Date: 20220213
  Transmission Date: 20220423
  Serious: Yes (Other)
  Sender: FDA-Public Use
  Company Number: DE-JNJFOC-20220206641

PATIENT
  Sex: Female

DRUGS (11)
  1. IMODIUM [Suspect]
     Active Substance: LOPERAMIDE HYDROCHLORIDE
     Indication: Product used for unknown indication
     Route: 065
  2. TACROLIMUS [Suspect]
     Active Substance: TACROLIMUS
  3. PANTOPRAZOLE [Suspect]
     Active Substance: PANTOPRAZOLE
  4. HYDROCHLOROTHIAZIDE [Suspect]
     Active Substance: HYDROCHLOROTHIAZIDE
  5. TORSEMIDE [Suspect]
     Active Substance: TORSEMIDE
  6. COTRIMOXAZOLE [Suspect]
     Active Substance: SULFAMETHOXAZOLE\TRIMETHOPRIM
  7. ESOMEPRAZOLE [Suspect]
     Active Substance: ESOMEPRAZOLE
  8. FUROSEMIDE [Suspect]
     Active Substance: FUROSEMIDE
  9. OMEPRAZOLE [Suspect]
     Active Substance: OMEPRAZOLE
  10. AZITHROMYCIN [Suspect]
     Active Substance: AZITHROMYCIN
  11. CITALOPRAM [Suspect]
     Active Substance: CITALOPRAM HYDROBROMIDE

REACTIONS (1)
  - Long QT syndrome [Unknown]
